FAERS Safety Report 8567124 (Version 2)
Quarter: 2012Q4

REPORT INFORMATION
  Report Type: 
  Country: US (occurrence: US)
  Receive Date: 20120517
  Receipt Date: 20121116
  Transmission Date: 20130627
  Serious: No
  Sender: FDA-Public Use
  Company Number: US-GLAXOSMITHKLINE-A0962432A

PATIENT
  Age: 60 Year
  Sex: Male

DRUGS (10)
  1. VOTRIENT [Suspect]
     Indication: THYROID CANCER
     Dosage: 800MG Per day
     Route: 048
     Dates: start: 20111127
  2. AVAPRO [Concomitant]
  3. PRAVASTATIN [Concomitant]
  4. LEVOXYL [Concomitant]
  5. FLOMAX [Concomitant]
  6. FINASTERIDE [Concomitant]
  7. BABY ASPIRIN [Concomitant]
  8. VIAGRA [Concomitant]
  9. SUDAFED [Concomitant]
  10. ASMANEX [Concomitant]

REACTIONS (9)
  - Blister [Not Recovered/Not Resolved]
  - Skin exfoliation [Not Recovered/Not Resolved]
  - Hyperkeratosis [Not Recovered/Not Resolved]
  - Stomatitis [Not Recovered/Not Resolved]
  - Hypogeusia [Not Recovered/Not Resolved]
  - Blood pressure increased [Not Recovered/Not Resolved]
  - Nausea [Recovered/Resolved]
  - Diarrhoea [Recovered/Resolved]
  - Hair colour changes [Not Recovered/Not Resolved]
